FAERS Safety Report 9107894 (Version 1)
Quarter: 2013Q1

REPORT INFORMATION
  Report Type: Spontaneous
  Country: CM (occurrence: CM)
  Receive Date: 20130221
  Receipt Date: 20130221
  Transmission Date: 20140127
  Serious: Yes (Hospitalization)
  Sender: FDA-Public Use
  Company Number: CM-009507513-1302CMR006690

PATIENT
  Age: 24 Year
  Sex: Male
  Weight: 57 kg

DRUGS (1)
  1. MECTIZAN [Suspect]
     Indication: ONCHOCERCIASIS
     Dosage: 4 DF, UNK
     Route: 048
     Dates: start: 20121109

REACTIONS (4)
  - Arthralgia [Recovered/Resolved]
  - Vision blurred [Recovered/Resolved]
  - Abasia [Recovered/Resolved]
  - Conjunctival haemorrhage [Recovered/Resolved]
